FAERS Safety Report 6074846-0 (Version None)
Quarter: 2009Q1

REPORT INFORMATION
  Report Type: 
  Country: None (occurrence: None)
  Receive Date: 20090210
  Receipt Date: 20090210
  Transmission Date: 20090719
  Serious: Yes (Life-Threatening, Hospitalization)
  Sender: FDA-Public Use
  Company Number: None

PATIENT
  Age: 55 Year
  Sex: Male
  Weight: 75.8 kg

DRUGS (3)
  1. LISINOPRIL [Suspect]
     Indication: HYPERTENSION
     Dosage: 20 MG  DAILY PO
     Route: 048
     Dates: start: 20090120, end: 20090120
  2. METHYLPHENIDATE 5 MG MALLINCKRODT [Suspect]
     Indication: FATIGUE
     Dosage: 5 MG -1/2 OF A 10 MG TABLET TWICE DAILY PO
     Route: 048
     Dates: start: 20090120, end: 20090120
  3. METHYLPHENIDATE 5 MG MALLINCKRODT [Suspect]
     Indication: NEOPLASM MALIGNANT
     Dosage: 5 MG -1/2 OF A 10 MG TABLET TWICE DAILY PO
     Route: 048
     Dates: start: 20090120, end: 20090120

REACTIONS (2)
  - ANGIOEDEMA [None]
  - HYPERSENSITIVITY [None]
